FAERS Safety Report 22203973 (Version 1)
Quarter: 2023Q2

REPORT INFORMATION
  Report Type: Spontaneous
  Country: IL (occurrence: IL)
  Receive Date: 20230412
  Receipt Date: 20230412
  Transmission Date: 20230722
  Serious: Yes (Hospitalization)
  Sender: FDA-Public Use
  Company Number: IL-Eisai Medical Research-EC-2023-137798

PATIENT
  Age: 75 Year
  Sex: Male

DRUGS (2)
  1. LENVIMA [Suspect]
     Active Substance: LENVATINIB
     Indication: Clear cell renal cell carcinoma
     Dosage: DOSE AND FREQUENCY UNKNOWN
     Route: 048
  2. PEMBROLIZUMAB [Suspect]
     Active Substance: PEMBROLIZUMAB
     Indication: Clear cell renal cell carcinoma
     Dosage: DOSE AND FREQUENCY UNKNOWN

REACTIONS (2)
  - Loss of consciousness [Unknown]
  - Blood pressure decreased [Unknown]
